FAERS Safety Report 8593493 (Version 3)
Quarter: 2012Q4

REPORT INFORMATION
  Report Type: 
  Country: CA (occurrence: CA)
  Receive Date: 20120604
  Receipt Date: 20121031
  Transmission Date: 20130627
  Serious: Yes (Hospitalization)
  Sender: FDA-Public Use
  Company Number: PHHY2012CA046570

PATIENT
  Sex: Female

DRUGS (2)
  1. TOBI [Suspect]
  2. TOBRAMYCIN [Suspect]

REACTIONS (5)
  - Device intolerance [Unknown]
  - Hypersensitivity [Unknown]
  - Dyspnoea [Unknown]
  - Malaise [Unknown]
  - Feeling abnormal [Unknown]
